FAERS Safety Report 15168640 (Version 8)
Quarter: 2019Q4

REPORT INFORMATION
  Report Type: Spontaneous
  Country: JP (occurrence: JP)
  Receive Date: 20180719
  Receipt Date: 20191115
  Transmission Date: 20200122
  Serious: Yes (Death, Hospitalization, Other)
  Sender: FDA-Public Use
  Company Number: JP-009507513-1807JPN001792J

PATIENT
  Age: 78 Year
  Sex: Male
  Weight: 65 kg

DRUGS (7)
  1. KEYTRUDA [Suspect]
     Active Substance: PEMBROLIZUMAB
     Indication: TRANSITIONAL CELL CARCINOMA
     Dosage: 200 MILLIGRAM, Q3W
     Route: 041
     Dates: start: 20180711, end: 20180711
  2. TAMSULOSIN HYDROCHLORIDE. [Concomitant]
     Active Substance: TAMSULOSIN HYDROCHLORIDE
     Indication: BENIGN PROSTATIC HYPERPLASIA
     Dosage: 0.2 MILLIGRAM, QD
     Route: 048
     Dates: start: 201312
  3. OXINORM [Concomitant]
     Indication: CANCER PAIN
     Dosage: 2.5 MILLIGRAM, PRN
     Route: 048
     Dates: start: 20180530
  4. CALONAL [Concomitant]
     Active Substance: ACETAMINOPHEN
     Indication: CANCER PAIN
     Dosage: 500 MILLIGRAM, QID
     Route: 048
     Dates: start: 20180228
  5. OXYCONTIN [Concomitant]
     Active Substance: OXYCODONE HYDROCHLORIDE
     Dosage: 5 MILLIGRAM, BID
     Route: 048
     Dates: start: 20180712
  6. ETIZOLAM [Concomitant]
     Active Substance: ETIZOLAM
     Indication: INSOMNIA
     Dosage: 0.5 MILLIGRAM, BID
     Route: 048
     Dates: start: 201602
  7. ZOLPIDEM TARTRATE. [Concomitant]
     Active Substance: ZOLPIDEM TARTRATE
     Indication: INSOMNIA
     Dosage: 10 MILLIGRAM, QD
     Route: 048
     Dates: start: 20171229

REACTIONS (3)
  - Multiple organ dysfunction syndrome [Fatal]
  - Malignant neoplasm progression [Fatal]
  - Nephropathy toxic [Fatal]

NARRATIVE: CASE EVENT DATE: 20180717
